FAERS Safety Report 7336384-4 (Version None)
Quarter: 2011Q1

REPORT INFORMATION
  Report Type: 
  Country: None (occurrence: None)
  Receive Date: 20110307
  Receipt Date: 20110302
  Transmission Date: 20110831
  Serious: Yes (Hospitalization, Other)
  Sender: FDA-Public Use
  Company Number: US-PFIZER INC-2010153418

PATIENT
  Sex: Female

DRUGS (1)
  1. CHANTIX [Suspect]
     Indication: SMOKING CESSATION THERAPY
     Dosage: STARTING PACK AND 1 MG CONTINUING MONTH PACK
     Dates: start: 20090401, end: 20090416

REACTIONS (6)
  - RESPIRATORY FAILURE [None]
  - INTENTIONAL OVERDOSE [None]
  - MULTIPLE INJURIES [None]
  - DEPRESSION [None]
  - ANXIETY [None]
  - SUICIDE ATTEMPT [None]
